FAERS Safety Report 6054594-3 (Version None)
Quarter: 2009Q1

REPORT INFORMATION
  Report Type: 
  Country: None (occurrence: None)
  Receive Date: 20090127
  Receipt Date: 20090123
  Transmission Date: 20090719
  Serious: Yes (Life-Threatening, Hospitalization)
  Sender: FDA-Public Use
  Company Number: CA-MERCK-0809CAN00033

PATIENT
  Age: 52 Year
  Sex: Female
  Weight: 75 kg

DRUGS (1)
  1. COZAAR [Suspect]
     Indication: ESSENTIAL HYPERTENSION
     Route: 048
     Dates: start: 20080619, end: 20080710

REACTIONS (2)
  - PANCREATITIS ACUTE [None]
  - PSEUDOCYST [None]
